FAERS Safety Report 8608054-3 (Version None)
Quarter: 2012Q3

REPORT INFORMATION
  Report Type: 
  Country: None (occurrence: None)
  Receive Date: 20120821
  Receipt Date: 20120813
  Transmission Date: 20120928
  Serious: Yes (Other)
  Sender: FDA-Public Use
  Company Number: US-SANOFI-AVENTIS-2012SA054457

PATIENT
  Age: 49 Year
  Sex: Female

DRUGS (4)
  1. TOPROL-XL [Concomitant]
     Indication: ATRIAL FIBRILLATION
  2. MULTI-VITAMINS [Concomitant]
     Indication: VITAMIN SUPPLEMENTATION
     Route: 048
  3. ASPIRIN [Concomitant]
     Indication: ATRIAL FIBRILLATION
     Route: 048
  4. MULTAQ [Suspect]
     Indication: ATRIAL FIBRILLATION
     Route: 048
     Dates: start: 20120502, end: 20120703

REACTIONS (5)
  - WEIGHT INCREASED [None]
  - CHEST PAIN [None]
  - COUGH [None]
  - PERICARDITIS [None]
  - WHEEZING [None]
